FAERS Safety Report 11366197 (Version 1)
Quarter: 2015Q3

REPORT INFORMATION
  Report Type: Spontaneous
  Country: DE (occurrence: DE)
  Receive Date: 20150811
  Receipt Date: 20150811
  Transmission Date: 20151125
  Serious: Yes (Hospitalization)
  Sender: FDA-Public Use
  Company Number: DE-SA-2015SA113199

PATIENT
  Age: 48 Year
  Sex: Female

DRUGS (7)
  1. LYRICA [Concomitant]
     Active Substance: PREGABALIN
  2. ZOLPIDEM [Concomitant]
     Active Substance: ZOLPIDEM\ZOLPIDEM TARTRATE
  3. FAMPYRA [Concomitant]
     Active Substance: DALFAMPRIDINE
  4. LEMTRADA [Suspect]
     Active Substance: ALEMTUZUMAB
     Indication: RELAPSING-REMITTING MULTIPLE SCLEROSIS
     Route: 041
     Dates: start: 20150704, end: 20150706
  5. PANTOZOL [Concomitant]
     Active Substance: PANTOPRAZOLE SODIUM
  6. ACICLOVIR [Concomitant]
     Active Substance: ACYCLOVIR
  7. CITALOPRAM [Concomitant]
     Active Substance: CITALOPRAM HYDROBROMIDE

REACTIONS (7)
  - Rash [Not Recovered/Not Resolved]
  - Erythema [Unknown]
  - Lymphopenia [Unknown]
  - Pruritus [Unknown]
  - Skin reaction [Not Recovered/Not Resolved]
  - Urticaria [Recovered/Resolved]
  - Photodermatosis [Not Recovered/Not Resolved]

NARRATIVE: CASE EVENT DATE: 201507
